FAERS Safety Report 14696970 (Version 1)
Quarter: 2018Q1

REPORT INFORMATION
  Report Type: Spontaneous
  Country: US (occurrence: US)
  Receive Date: 20180330
  Receipt Date: 20180330
  Transmission Date: 20180509
  Serious: No
  Sender: FDA-Public Use
  Company Number: US-SA-2017SA094733

PATIENT
  Sex: Female

DRUGS (1)
  1. ALLEGRA ALLERGY [Suspect]
     Active Substance: FEXOFENADINE HYDROCHLORIDE
     Dosage: DOSE TEXT: PATIENT TOOK ALLEGRA THIS MORNING AT 6:30 AM AND MISTAKENLY TOOK A SECOND DOSE OF ALLEGRA
     Route: 065

REACTIONS (2)
  - Dry mouth [Unknown]
  - Extra dose administered [Unknown]
